FAERS Safety Report 4659773-5 (Version None)
Quarter: 2005Q2

REPORT INFORMATION
  Report Type: 
  Country: None (occurrence: None)
  Receive Date: 20050510
  Receipt Date: 20050427
  Transmission Date: 20051028
  Serious: No
  Sender: FDA-Public Use
  Company Number: HQWYE458629APR05

PATIENT
  Sex: Male

DRUGS (8)
  1. RAPAMUNE [Suspect]
     Indication: PROPHYLAXIS AGAINST TRANSPLANT REJECTION
     Dosage: 2-3MG PER DAY, ORAL
     Route: 048
  2. NORVASC [Concomitant]
  3. SEPTRA [Concomitant]
  4. PREVACID [Concomitant]
  5. METOCLOPRAMIDE (METOCLORPAMIDE) [Concomitant]
  6. LABETALOL HCL [Concomitant]
  7. KLONOPIN [Concomitant]
  8. PROGRAF [Concomitant]

REACTIONS (3)
  - DRUG TOXICITY [None]
  - RETINAL DEPIGMENTATION [None]
  - RETINAL HAEMORRHAGE [None]
